FAERS Safety Report 7347259-9 (Version None)
Quarter: 2011Q1

REPORT INFORMATION
  Report Type: 
  Country: None (occurrence: None)
  Receive Date: 20110303
  Receipt Date: 20110215
  Transmission Date: 20110831
  Serious: Yes (Other)
  Sender: FDA-Public Use
  Company Number: JPI-P-013548

PATIENT
  Age: 38 Year
  Sex: Female
  Weight: 79.8331 kg

DRUGS (5)
  1. XYREM [Suspect]
     Indication: CATAPLEXY
     Dosage: (2 IN 1 D, ORAL) (9 GM (4.5 GM, 2 IN 1 D), ORAL)
     Route: 048
     Dates: start: 20051201
  2. METHYLPHENIDATE HCL [Concomitant]
  3. DESVENLAFAXINE [Concomitant]
  4. FOLIC ACID [Concomitant]
  5. TOPIRAMATE [Concomitant]

REACTIONS (7)
  - INSOMNIA [None]
  - ABORTION SPONTANEOUS [None]
  - PREGNANCY [None]
  - WEIGHT INCREASED [None]
  - DRUG EXPOSURE DURING PREGNANCY [None]
  - INCREASED APPETITE [None]
  - PARASOMNIA [None]
